FAERS Safety Report 12620215 (Version 2)
Quarter: 2016Q3

REPORT INFORMATION
  Report Type: Spontaneous
  Country: GB (occurrence: GB)
  Receive Date: 20160803
  Receipt Date: 20160819
  Transmission Date: 20161109
  Serious: Yes (Other)
  Sender: FDA-Public Use
  Company Number: GB-TEVA-679676ACC

PATIENT
  Age: 49 Year
  Sex: Female

DRUGS (4)
  1. ASPIRIN. [Concomitant]
     Active Substance: ASPIRIN
  2. PARACETAMOL [Concomitant]
     Active Substance: ACETAMINOPHEN
  3. CHAMOMILE? [Interacting]
     Active Substance: CHAMOMILE
     Route: 065
  4. TEVA UK OLANZAPINE [Suspect]
     Active Substance: OLANZAPINE
     Indication: PARANOIA
     Route: 048

REACTIONS (3)
  - Tinea pedis [Unknown]
  - Herbal interaction [Unknown]
  - Pyrexia [Unknown]
